FAERS Safety Report 15686209 (Version 2)
Quarter: 2018Q4

REPORT INFORMATION
  Report Type: Spontaneous
  Country: US (occurrence: US)
  Receive Date: 20181204
  Receipt Date: 20181227
  Transmission Date: 20190205
  Serious: No
  Sender: FDA-Public Use
  Company Number: US-ASTRAZENECA-2018SF56459

PATIENT
  Sex: Female

DRUGS (1)
  1. SYMBICORT [Suspect]
     Active Substance: BUDESONIDE\FORMOTEROL FUMARATE DIHYDRATE
     Route: 055

REACTIONS (6)
  - Haemoglobin decreased [Unknown]
  - Dyspnoea [Unknown]
  - Hypoacusis [Unknown]
  - Gluten sensitivity [Unknown]
  - Diarrhoea [Unknown]
  - Haematocrit decreased [Unknown]
